FAERS Safety Report 15776621 (Version 17)
Quarter: 2024Q1

REPORT INFORMATION
  Report Type: Spontaneous
  Country: US (occurrence: US)
  Receive Date: 20181231
  Receipt Date: 20240118
  Transmission Date: 20240410
  Serious: Yes (Other)
  Sender: FDA-Public Use
  Company Number: US-PFIZER INC-2017488048

PATIENT
  Age: 71 Year
  Sex: Female
  Weight: 77.6 kg

DRUGS (7)
  1. PREMARIN [Suspect]
     Active Substance: ESTROGENS, CONJUGATED
     Indication: Atrophic vulvovaginitis
     Dosage: UNK
  2. PREMARIN [Suspect]
     Active Substance: ESTROGENS, CONJUGATED
     Indication: Urinary incontinence
     Dosage: 0.5 G, 1X/DAY (NIGHTLY)
     Route: 067
     Dates: start: 20200729
  3. PREMARIN [Suspect]
     Active Substance: ESTROGENS, CONJUGATED
     Indication: Cystitis
     Dosage: 1 G, 2X/WEEK
     Route: 067
     Dates: start: 20220726
  4. PREMARIN [Suspect]
     Active Substance: ESTROGENS, CONJUGATED
     Dosage: 1 G, 2X/WEEK
     Route: 067
  5. PREMARIN [Suspect]
     Active Substance: ESTROGENS, CONJUGATED
     Dosage: 0.5 G, 2X/WEEK (ADMINISTER ONE HALF G INTRAVAGINALLY TWICE WEEKLY)
     Route: 067
  6. PREMARIN [Suspect]
     Active Substance: ESTROGENS, CONJUGATED
     Dosage: 0.5 G, 2X/WEEK (ADMINISTER ONE HALF G INTRAVAGINALLY TWICE WEEKLY)
     Route: 067
  7. PREMARIN [Suspect]
     Active Substance: ESTROGENS, CONJUGATED
     Dosage: I USE MORE THAN A HALF A GRAM

REACTIONS (6)
  - Drug dependence [Unknown]
  - Neuralgia [Unknown]
  - Memory impairment [Unknown]
  - Grip strength decreased [Unknown]
  - Off label use [Unknown]
  - Intentional product use issue [Unknown]

NARRATIVE: CASE EVENT DATE: 20200729
